FAERS Safety Report 20232650 (Version 1)
Quarter: 2021Q4

REPORT INFORMATION
  Report Type: Spontaneous
  Country: None (occurrence: JP)
  Receive Date: 20211227
  Receipt Date: 20211227
  Transmission Date: 20220303
  Serious: Yes (Other)
  Sender: FDA-Public Use
  Company Number: JP-Breckenridge Pharmaceutical, Inc.-2123396

PATIENT
  Age: 71 Year
  Sex: Female

DRUGS (2)
  1. EPINASTINE [Suspect]
     Active Substance: EPINASTINE
     Route: 048
  2. TOCOPHEROL ACETATE TABLETS [Concomitant]

REACTIONS (1)
  - Glaucoma [Unknown]
